FAERS Safety Report 17192688 (Version 2)
Quarter: 2020Q1

REPORT INFORMATION
  Report Type: Spontaneous
  Country: US (occurrence: US)
  Receive Date: 20191223
  Receipt Date: 20200330
  Transmission Date: 20200409
  Serious: Yes (Other)
  Sender: FDA-Public Use
  Company Number: US-SA-2019SA349756

PATIENT
  Age: 76 Year
  Sex: Female
  Weight: 124 kg

DRUGS (5)
  1. LORAZEPAM. [Concomitant]
     Active Substance: LORAZEPAM
     Dosage: UNK
     Dates: start: 20110708
  2. TAXOTERE [Suspect]
     Active Substance: DOCETAXEL
     Dosage: 158 MG
     Route: 042
     Dates: start: 20110714, end: 20110714
  3. ACTINOMYCIN C [Concomitant]
     Active Substance: CACTINOMYCIN
  4. TAXOTERE [Suspect]
     Active Substance: DOCETAXEL
     Indication: BREAST CANCER
     Dosage: 158 MG, UNK
     Route: 042
     Dates: start: 20110615, end: 20110615
  5. PROCHLORPERAZINE. [Concomitant]
     Active Substance: PROCHLORPERAZINE
     Dosage: UNK
     Dates: start: 20110907

REACTIONS (1)
  - Alopecia [Recovering/Resolving]

NARRATIVE: CASE EVENT DATE: 20111221
